FAERS Safety Report 7231317-3 (Version None)
Quarter: 2011Q1

REPORT INFORMATION
  Report Type: 
  Country: None (occurrence: None)
  Receive Date: 20110118
  Receipt Date: 20110117
  Transmission Date: 20110831
  Serious: Yes (Other)
  Sender: FDA-Public Use
  Company Number: GXKR2010BR10710

PATIENT
  Age: 74 Year
  Sex: Female

DRUGS (10)
  1. CAPTOPRIL [Concomitant]
     Dosage: 75 MG/DAY
  2. FLUNARIZINE [Interacting]
     Dosage: 10 MG/DAY
  3. AMANTADINE [Concomitant]
     Dosage: 200 MG/DAY
  4. PRAMIPEXOLE [Concomitant]
     Dosage: 3 MG/DAY
  5. LEVOTHYROXINE [Concomitant]
     Dosage: 50 UG/DAY
  6. TRIMETAZIDINE [Concomitant]
     Dosage: 60 MG/DAY
  7. BIPERIDEN HYDROCHLORIDE TAB [Concomitant]
     Dosage: 4 MG/DAY
  8. LEVODOPA W/BENSERAZIDE/ [Concomitant]
  9. AMIODARONE [Suspect]
     Dosage: 400 MG/DAY
  10. TOLCAPONE [Concomitant]
     Dosage: 300 MG/DAY

REACTIONS (13)
  - MUSCLE RIGIDITY [None]
  - TORTICOLLIS [None]
  - GAZE PALSY [None]
  - PROGRESSIVE SUPRANUCLEAR PALSY [None]
  - DYSPHAGIA [None]
  - DRUG INTERACTION [None]
  - MOVEMENT DISORDER [None]
  - BRADYKINESIA [None]
  - FALL [None]
  - DYSARTHRIA [None]
  - TREMOR [None]
  - FREEZING PHENOMENON [None]
  - COGNITIVE DISORDER [None]
